FAERS Safety Report 9456887 (Version 2)
Quarter: 2014Q2

REPORT INFORMATION
  Report Type: Spontaneous
  Country: US (occurrence: None)
  Receive Date: 20130809
  Receipt Date: 20140501
  Transmission Date: 20141212
  Serious: Yes (Hospitalization, Other)
  Sender: FDA-Public Use
  Company Number: 2012-390

PATIENT
  Age: 55 Year
  Sex: Female

DRUGS (4)
  1. PRIALT (ZICONTIDE) [Suspect]
     Indication: PAIN
     Dosage: UNKNOWN MCG, ONCE PER HOUR INTRATHECAL
     Route: 037
  2. PRIALT (ZICONTIDE) [Suspect]
     Indication: POST LAMINECTOMY SYNDROME
     Dosage: UNKNOWN MCG, ONCE PER HOUR INTRATHECAL
     Route: 037
  3. DILAUDID (HYDROMORPHONE HYDROCHLORIDE) [Suspect]
     Indication: PAIN
     Dosage: ONCE HOUR.
     Route: 037
  4. DILAUDID (HYDROMORPHONE HYDROCHLORIDE) [Suspect]
     Indication: POST LAMINECTOMY SYNDROME
     Dosage: ONCE HOUR.
     Route: 037

REACTIONS (13)
  - Hallucination, olfactory [None]
  - Overdose [None]
  - Flushing [None]
  - Bowel movement irregularity [None]
  - Feeling cold [None]
  - Drug withdrawal syndrome [None]
  - Insomnia [None]
  - Hyperhidrosis [None]
  - Anxiety [None]
  - Nervousness [None]
  - Nausea [None]
  - Tremor [None]
  - Hallucination, gustatory [None]
